FAERS Safety Report 15352195 (Version 2)
Quarter: 2018Q4

REPORT INFORMATION
  Report Type: Spontaneous
  Country: JP (occurrence: JP)
  Receive Date: 20180905
  Receipt Date: 20181029
  Transmission Date: 20190204
  Serious: Yes (Death, Other)
  Sender: FDA-Public Use
  Company Number: JP-PFIZER INC-2018350671

PATIENT

DRUGS (1)
  1. INLYTA [Suspect]
     Active Substance: AXITINIB
     Dosage: 6 MG, DAILY
     Route: 048
     Dates: start: 201808, end: 201808

REACTIONS (4)
  - Neoplasm progression [Fatal]
  - Depressed level of consciousness [Unknown]
  - Blood pressure decreased [Unknown]
  - Blood pressure increased [Recovered/Resolved]

NARRATIVE: CASE EVENT DATE: 201808
